FAERS Safety Report 8036129-9 (Version None)
Quarter: 2012Q1

REPORT INFORMATION
  Report Type: 
  Country: None (occurrence: None)
  Receive Date: 20120111
  Receipt Date: 20120105
  Transmission Date: 20120608
  Serious: Yes (Other)
  Sender: FDA-Public Use
  Company Number: US-WATSON-2012-00344

PATIENT
  Age: 59 Year
  Sex: Female

DRUGS (3)
  1. CHEWABLE ANTACID EXTRA STRENGTH ASSORTED BERRIES [Suspect]
     Indication: BONE DISORDER
  2. AOV VITAMIN D3 [Suspect]
     Indication: BONE DISORDER
  3. ALENDRONATE SODIUM [Suspect]
     Indication: BONE DISORDER
     Dosage: UNK

REACTIONS (1)
  - FIBULA FRACTURE [None]
